FAERS Safety Report 10007611 (Version 1)
Quarter: 2014Q1

REPORT INFORMATION
  Report Type: Spontaneous
  Country: GB (occurrence: None)
  Receive Date: 20140311
  Receipt Date: 20140311
  Transmission Date: 20141002
  Serious: Yes (Death)
  Sender: FDA-Public Use
  Company Number: FK201400751

PATIENT
  Age: 65 Year
  Sex: Male

DRUGS (8)
  1. CYTARABINE (MANUFACTURER UNKNOWN) (CYTARABINE) (CYTARABINE) [Suspect]
     Indication: CASTLEMAN^S DISEASE
     Dosage: CYCLICAL
  2. CISPLATIN (CISPLATIN) (CISPLATIN) [Suspect]
     Indication: CASTLEMAN^S DISEASE
     Dosage: , CYCLICAL
  3. CYCLOPHOSPHAMIDE [Suspect]
     Indication: CASTLEMAN^S DISEASE
     Dosage: , CYCLICAL
  4. DEXAMETHASONE (DEXAMETHASONE) (DEXAMETHASONE) [Suspect]
     Indication: CASTLEMAN^S DISEASE
  5. DOXORUBICIN HYDROCHLORIDE [Suspect]
     Indication: CASTLEMAN^S DISEASE
     Dosage: , CYCLICAL
     Route: 042
  6. PREDNISONE (PREDNISONE) (PREDNISONE) [Suspect]
     Indication: CASTLEMAN^S DISEASE
     Dosage: , CYCLICAL
  7. RITUXIMAB (RITUXIMAB) (RITUXIMAB) [Suspect]
     Indication: CASTLEMAN^S DISEASE
     Dosage: , CYCLICAL
  8. VINCRISTINE (VINCRISTINE) (VINCRISTINE) [Suspect]
     Indication: CASTLEMAN^S DISEASE
     Dosage: , CYCLICAL

REACTIONS (4)
  - Disease progression [None]
  - Off label use [None]
  - Castleman^s disease [None]
  - Drug ineffective [None]
